FAERS Safety Report 18704807 (Version 1)
Quarter: 2021Q1

REPORT INFORMATION
  Report Type: Spontaneous
  Country: DE (occurrence: DE)
  Receive Date: 20210105
  Receipt Date: 20210105
  Transmission Date: 20210419
  Serious: Yes (Hospitalization)
  Sender: FDA-Public Use
  Company Number: DE-009507513-2012DEU013302

PATIENT
  Age: 60 Year
  Sex: Male

DRUGS (10)
  1. UMECLIDINIUM BROMIDE (+) VILANTEROL TRIFENATATE [Concomitant]
     Active Substance: UMECLIDINIUM BROMIDE\VILANTEROL TRIFENATATE
     Dosage: 62.5/25 MICRO?G, 1?0?1?0
  2. PEMETREXED DISODIUM [Suspect]
     Active Substance: PEMETREXED DISODIUM
     Dosage: 780 MG, 22092020
     Dates: end: 20200922
  3. FOLIC ACID. [Concomitant]
     Active Substance: FOLIC ACID
     Dosage: 5 MG, 1?0?0?0
  4. FLUCONAZOLE. [Suspect]
     Active Substance: FLUCONAZOLE
     Dosage: 200 MG, DISCONTINUED 15?SEP?2020
     Dates: end: 20200915
  5. ALBUTEROL. [Concomitant]
     Active Substance: ALBUTEROL
     Dosage: AS NEEDED
  6. PEMBROLIZUMAB. [Suspect]
     Active Substance: PEMBROLIZUMAB
     Dosage: 200 MG, 22092020
     Dates: end: 20200922
  7. PANTOPRAZOLE [Concomitant]
     Active Substance: PANTOPRAZOLE
     Dosage: 40 MG, 1?0?0?0
  8. CARBOPLATIN. [Suspect]
     Active Substance: CARBOPLATIN
     Dosage: 500 MG, LAST 11?AUG?2020 NOW PAUSE
     Dates: end: 20200811
  9. ASPIRIN. [Concomitant]
     Active Substance: ASPIRIN
     Dosage: 100 MG, 1?0?0?0
  10. VERAPAMIL [Concomitant]
     Active Substance: VERAPAMIL HYDROCHLORIDE
     Dosage: 40 MG, 1?0?1?0

REACTIONS (8)
  - Cough [Unknown]
  - Condition aggravated [Unknown]
  - Dysphagia [Unknown]
  - Cachexia [Unknown]
  - General physical health deterioration [Unknown]
  - Anaemia [Unknown]
  - Wheezing [Unknown]
  - Product dose omission issue [Unknown]
